FAERS Safety Report 7523579-X (Version None)
Quarter: 2011Q2

REPORT INFORMATION
  Report Type: 
  Country: None (occurrence: None)
  Receive Date: 20110601
  Receipt Date: 20110601
  Transmission Date: 20111010
  Serious: Yes (Hospitalization)
  Sender: FDA-Public Use
  Company Number: None

PATIENT
  Age: 81 Year
  Sex: Male
  Weight: 89.3586 kg

DRUGS (7)
  1. DIGOXIN [Concomitant]
  2. ASPIRIN [Suspect]
     Indication: CARDIAC DISORDER
     Dosage: 81MG DAILY PO
     Route: 048
  3. METFORMIN HCL [Concomitant]
  4. PRADAXA [Suspect]
     Indication: ATRIAL FIBRILLATION
     Dosage: 150MG Q12H PO
     Route: 048
     Dates: start: 20110407, end: 20110413
  5. OMEPRAZOLE [Concomitant]
  6. METOPROLOL [Concomitant]
  7. SIMVASTATIN [Concomitant]

REACTIONS (6)
  - ARTHRALGIA [None]
  - COLON CANCER STAGE II [None]
  - GASTRITIS [None]
  - ATRIAL FIBRILLATION [None]
  - HAEMOGLOBIN DECREASED [None]
  - CARDIAC FAILURE CONGESTIVE [None]
